FAERS Safety Report 10082032 (Version 2)
Quarter: 2014Q2

REPORT INFORMATION
  Report Type: Spontaneous
  Country: JP (occurrence: JP)
  Receive Date: 20140416
  Receipt Date: 20140416
  Transmission Date: 20141212
  Serious: Yes (Hospitalization)
  Sender: FDA-Public Use
  Company Number: JP-PFIZER INC-2014073397

PATIENT
  Age: 75 Year
  Sex: Male

DRUGS (3)
  1. ZITHROMAC [Suspect]
     Indication: PNEUMONIA BACTERIAL
     Dosage: 500 MG, DAILY
     Route: 042
  2. ZOSYN [Suspect]
     Indication: PNEUMONIA BACTERIAL
     Dosage: UNK
     Route: 042
  3. OXYGEN [Concomitant]
     Indication: PNEUMONIA BACTERIAL
     Dosage: UNK

REACTIONS (2)
  - Interstitial lung disease [Unknown]
  - Drug ineffective [Unknown]
